FAERS Safety Report 9227459 (Version 1)
Quarter: 2013Q2

REPORT INFORMATION
  Report Type: Spontaneous
  Country: US (occurrence: None)
  Receive Date: 20130411
  Receipt Date: 20130411
  Transmission Date: 20140414
  Serious: Yes (Hospitalization)
  Sender: FDA-Public Use
  Company Number: None

PATIENT
  Age: 76 Year
  Sex: Male
  Weight: 79.8 kg

DRUGS (14)
  1. XARELTO [Suspect]
     Indication: ATRIAL FIBRILLATION
     Dosage: RECENT RESTART QPM
     Route: 048
  2. VOTRIENT [Suspect]
     Indication: RENAL CANCER
     Dosage: RECENT RESTART
     Route: 048
  3. PERCOCET [Concomitant]
  4. ZOFRAN [Concomitant]
  5. MECLIZINE [Concomitant]
  6. BUMEX [Concomitant]
  7. NORVASC [Concomitant]
  8. AMARYL [Concomitant]
  9. ATIVAN [Concomitant]
  10. AMBIEN [Concomitant]
  11. HYDRALAZINE [Concomitant]
  12. LOPRESSOR [Concomitant]
  13. BISACODYL [Concomitant]
  14. MORPHINE/BUPIV [Concomitant]

REACTIONS (1)
  - Haemoptysis [None]
